FAERS Safety Report 4483040-6 (Version None)
Quarter: 2004Q3

REPORT INFORMATION
  Report Type: 
  Country: None (occurrence: None)
  Receive Date: 20040921
  Receipt Date: 20040512
  Transmission Date: 20050211
  Serious: Yes (Hospitalization)
  Sender: FDA-Public Use
  Company Number: 163-20785-04050279 (0)

PATIENT
  Age: 75 Year
  Sex: Male

DRUGS (7)
  1. THALOMID [Suspect]
     Indication: SMALL CELL LUNG CANCER EXTENSIVE STAGE
     Dosage: 200 MG QD ORAL
     Route: 048
     Dates: start: 20040426
  2. ADVAIR (SERETIDE MITE) [Concomitant]
  3. ASPIRIN [Concomitant]
  4. COLACE (DOCUSATE SODIUM) [Concomitant]
  5. VICODIN [Concomitant]
  6. ATIVAN [Concomitant]
  7. CARDIZEM [Concomitant]

REACTIONS (2)
  - DYSPNOEA [None]
  - PLEURAL EFFUSION [None]
